FAERS Safety Report 8198898-7 (Version None)
Quarter: 2012Q1

REPORT INFORMATION
  Report Type: 
  Country: None (occurrence: None)
  Receive Date: 20120309
  Receipt Date: 20120223
  Transmission Date: 20120608
  Serious: No
  Sender: FDA-Public Use
  Company Number: US-AMGEN-USASP2011035045

PATIENT
  Age: 97 Year
  Sex: Female

DRUGS (7)
  1. ASPIRIN [Concomitant]
     Dosage: UNK
  2. DIOVAN [Concomitant]
     Dosage: UNK
  3. CALCIUM [Concomitant]
     Dosage: UNK
  4. VITAMIN D [Concomitant]
     Dosage: UNK
  5. PROLIA [Suspect]
     Indication: OSTEOPOROSIS POSTMENOPAUSAL
     Dosage: 60 MG, Q6MO
     Dates: start: 20110628
  6. VITAMIN B COMPLEX CAP [Concomitant]
     Dosage: UNK
  7. TYLENOL [Concomitant]
     Dosage: UNK

REACTIONS (10)
  - BLISTER [None]
  - FEELING ABNORMAL [None]
  - HEART RATE IRREGULAR [None]
  - PRURITUS GENERALISED [None]
  - ERYTHEMA [None]
  - RASH [None]
  - SWELLING [None]
  - ASTHENIA [None]
  - EXERCISE TOLERANCE DECREASED [None]
  - DYSPNOEA [None]
